FAERS Safety Report 6091935-5 (Version None)
Quarter: 2009Q1

REPORT INFORMATION
  Report Type: 
  Country: None (occurrence: None)
  Receive Date: 20090225
  Receipt Date: 20081027
  Transmission Date: 20090719
  Serious: No
  Sender: FDA-Public Use
  Company Number: A0751826A

PATIENT
  Age: 75 Year
  Sex: Male

DRUGS (1)
  1. VALTREX [Suspect]
     Dosage: 1G THREE TIMES PER DAY
     Route: 048

REACTIONS (5)
  - DRUG INEFFECTIVE [None]
  - DYSURIA [None]
  - HEADACHE [None]
  - MICTURITION URGENCY [None]
  - NAUSEA [None]
